FAERS Safety Report 21273088 (Version 6)
Quarter: 2022Q4

REPORT INFORMATION
  Report Type: Spontaneous
  Country: US (occurrence: US)
  Receive Date: 20220831
  Receipt Date: 20221206
  Transmission Date: 20230113
  Serious: No
  Sender: FDA-Public Use
  Company Number: US-PFIZER INC-PV202200053250

PATIENT
  Age: 66 Year
  Sex: Female

DRUGS (1)
  1. ESTRING [Suspect]
     Active Substance: ESTRADIOL
     Dosage: UNK
     Route: 067

REACTIONS (6)
  - Drug ineffective [Unknown]
  - Pain [Unknown]
  - Discomfort [Unknown]
  - Device difficult to use [Unknown]
  - Device issue [Unknown]
  - Product size issue [Unknown]
